FAERS Safety Report 9401834 (Version 1)
Quarter: 2013Q3

REPORT INFORMATION
  Report Type: Spontaneous
  Country: US (occurrence: US)
  Receive Date: 20130716
  Receipt Date: 20130716
  Transmission Date: 20140515
  Serious: Yes (Hospitalization)
  Sender: FDA-Public Use
  Company Number: US-SANOFI-AVENTIS-2013SA070540

PATIENT
  Age: 69 Year
  Sex: Female

DRUGS (4)
  1. LANTUS SOLOSTAR [Suspect]
     Indication: TYPE 2 DIABETES MELLITUS
     Dosage: DOSE:75 UNIT(S)
     Route: 058
     Dates: start: 2010
  2. SOLOSTAR [Suspect]
     Indication: TYPE 2 DIABETES MELLITUS
     Dates: start: 2010
  3. VICTOZA [Concomitant]
  4. LEVEMIR [Concomitant]
     Route: 065
     Dates: start: 2010

REACTIONS (5)
  - Retinal disorder [Unknown]
  - Arthropathy [Unknown]
  - Weight increased [Unknown]
  - Drug dose omission [Unknown]
  - Incorrect product storage [Unknown]
